FAERS Safety Report 9344778 (Version 3)
Quarter: 2013Q3

REPORT INFORMATION
  Report Type: Spontaneous
  Country: US (occurrence: US)
  Receive Date: 20130612
  Receipt Date: 20130823
  Transmission Date: 20140515
  Serious: No
  Sender: FDA-Public Use
  Company Number: US-PFIZER INC-2013176710

PATIENT
  Age: 66 Year
  Sex: Female
  Weight: 76.64 kg

DRUGS (6)
  1. GABAPENTIN [Suspect]
     Indication: RESTLESS LEGS SYNDROME
     Dosage: 300 MG, UNK
     Dates: start: 201210
  2. GABAPENTIN [Suspect]
     Dosage: 600 MG, 3X/DAY
  3. LYRICA [Suspect]
     Indication: RESTLESS LEGS SYNDROME
     Dosage: 75 MG, 1 CAP NIGHTLY FOR 1 WK, 2 CAPS NIGHTLY FOR 1 WK, THEN 3 CAPS NIGHTLY )
     Route: 048
     Dates: start: 20130610, end: 20130617
  4. PRAMIPEXOLE [Suspect]
     Indication: RESTLESS LEGS SYNDROME
     Dosage: UNK
     Dates: start: 2006
  5. HORIZANT [Suspect]
     Indication: RESTLESS LEGS SYNDROME
     Dosage: UNK
     Dates: start: 201212
  6. HYDROCODONE W/ACETAMINOPHEN [Concomitant]
     Dosage: 1 TAB 3 PM-1 TAB HS

REACTIONS (8)
  - Drug intolerance [Unknown]
  - Skin discolouration [Unknown]
  - Drug ineffective [Unknown]
  - Restlessness [Unknown]
  - Feeling jittery [Unknown]
  - Insomnia [Unknown]
  - Activities of daily living impaired [Unknown]
  - Pain [Unknown]
